FAERS Safety Report 19967883 (Version 1)
Quarter: 2021Q4

REPORT INFORMATION
  Report Type: Spontaneous
  Country: US (occurrence: US)
  Receive Date: 20211014
  Receipt Date: 20211014
  Transmission Date: 20220303
  Serious: Yes (Hospitalization)
  Sender: FDA-Public Use
  Company Number: None

PATIENT
  Sex: Male

DRUGS (17)
  1. TESTOPEL [Suspect]
     Active Substance: TESTOSTERONE
     Indication: Testicular failure
     Dosage: ?          OTHER FREQUENCY:10 PELLETS;
     Route: 058
     Dates: start: 20171107
  2. BUPROP HCL [Concomitant]
  3. DICLOFENAC [Concomitant]
     Active Substance: DICLOFENAC
  4. DULOXETINE [Concomitant]
     Active Substance: DULOXETINE
  5. FENOFIBRATE [Concomitant]
     Active Substance: FENOFIBRATE
  6. GABAPENTIN [Concomitant]
     Active Substance: GABAPENTIN
  7. LACTULOSE [Concomitant]
     Active Substance: LACTULOSE
  8. LINZESS [Concomitant]
     Active Substance: LINACLOTIDE
  9. TESTICULAR HYPOFUNCTIONRL [Concomitant]
  10. METFORMIN [Concomitant]
     Active Substance: METFORMIN HYDROCHLORIDE
  11. NIFEDIPINE [Concomitant]
     Active Substance: NIFEDIPINE
  12. OMEPRAZOLE [Concomitant]
     Active Substance: OMEPRAZOLE
  13. OXYBUTYNIN. [Concomitant]
     Active Substance: OXYBUTYNIN CHLORIDE
  14. OXYCODONE AND ACETAMINOPHEN [Concomitant]
     Active Substance: ACETAMINOPHEN\OXYCODONE HYDROCHLORIDE
  15. SIMVASTATIN [Concomitant]
     Active Substance: SIMVASTATIN
  16. TAMSULOSIN [Concomitant]
     Active Substance: TAMSULOSIN
  17. TRAZODONE [Concomitant]
     Active Substance: TRAZODONE HYDROCHLORIDE

REACTIONS (1)
  - Spinal fusion surgery [None]
